FAERS Safety Report 24087575 (Version 1)
Quarter: 2024Q3

REPORT INFORMATION
  Report Type: Spontaneous
  Country: CN (occurrence: CN)
  Receive Date: 20240714
  Receipt Date: 20240714
  Transmission Date: 20241016
  Serious: Yes (Other)
  Sender: ROCHE
  Company Number: CN-BoehringerIngelheim-2024-BI-037528

PATIENT
  Age: 59 Year
  Sex: Male
  Weight: 40.0 kg

DRUGS (2)
  1. ACTIVASE [Suspect]
     Active Substance: ALTEPLASE
     Indication: Cerebral infarction
     Route: 042
     Dates: start: 20240628, end: 20240628
  2. ACTIVASE [Suspect]
     Active Substance: ALTEPLASE
     Route: 042
     Dates: start: 20240628, end: 20240628

REACTIONS (5)
  - Hypoaesthesia oral [Not Recovered/Not Resolved]
  - Muscular weakness [Not Recovered/Not Resolved]
  - Speech disorder [Not Recovered/Not Resolved]
  - Basal ganglia haemorrhage [Not Recovered/Not Resolved]
  - Off label use [Unknown]

NARRATIVE: CASE EVENT DATE: 20240628
